FAERS Safety Report 6065294-8 (Version None)
Quarter: 2009Q1

REPORT INFORMATION
  Report Type: 
  Country: None (occurrence: None)
  Receive Date: 20090204
  Receipt Date: 20090123
  Transmission Date: 20090719
  Serious: Yes (Hospitalization)
  Sender: FDA-Public Use
  Company Number: US-PFIZER INC-2009159828

PATIENT
  Sex: Male

DRUGS (5)
  1. AXITINIB [Suspect]
     Indication: COLON CANCER
     Dosage: 5 MG, 2X/DAY
     Route: 048
     Dates: start: 20081014
  2. IRINOTECAN HCL [Suspect]
     Indication: COLON CANCER
     Dosage: 180MG/M2, Q14D, OTO
     Route: 042
     Dates: start: 20081014
  3. CALCIUM FOLINATE [Suspect]
     Indication: COLON CANCER
     Dosage: 820 MG, OTO, Q14D
     Route: 042
     Dates: start: 20081014
  4. FLUOROURACIL [Suspect]
     Indication: COLON CANCER
     Dosage: 820 MG, OTO, Q14D
     Route: 040
     Dates: start: 20081014
  5. FLUOROURACIL [Suspect]
     Dosage: 4920 MG, X3D, Q14D
     Route: 041
     Dates: start: 20081014

REACTIONS (2)
  - PNEUMOTHORAX [None]
  - PULMONARY EMBOLISM [None]
